FAERS Safety Report 14023645 (Version 2)
Quarter: 2017Q4

REPORT INFORMATION
  Report Type: Spontaneous
  Country: IT (occurrence: IT)
  Receive Date: 20170929
  Receipt Date: 20171023
  Transmission Date: 20180321
  Serious: Yes (Other)
  Sender: FDA-Public Use
  Company Number: IT-TEVA-808785ACC

PATIENT
  Age: 10 Year
  Sex: Male
  Weight: 55 kg

DRUGS (3)
  1. ARIPIPRAZOLO TEVA ITALIA S.R.L. [Suspect]
     Active Substance: ARIPIPRAZOLE
     Indication: ABNORMAL BEHAVIOUR
     Route: 048
     Dates: start: 20170705, end: 20170810
  2. DEPAKIN-500 MG COMPRESSE GASTRORESISTENTI - SANOFI S.P.A.? [Concomitant]
     Indication: PRODUCT USED FOR UNKNOWN INDICATION
     Route: 048
  3. MATEVER - 500 MG COMPRESSA RIVESTITA CON FILM - PHARMATHEN S.A.? [Concomitant]
     Indication: PRODUCT USED FOR UNKNOWN INDICATION
     Route: 048

REACTIONS (4)
  - Drug ineffective [Recovering/Resolving]
  - Hallucination [Recovering/Resolving]
  - Abnormal behaviour [Recovering/Resolving]
  - Enuresis [Recovering/Resolving]

NARRATIVE: CASE EVENT DATE: 20170710
